FAERS Safety Report 21610436 (Version 1)
Quarter: 2022Q4

REPORT INFORMATION
  Report Type: Spontaneous
  Country: US (occurrence: US)
  Receive Date: 20221117
  Receipt Date: 20221117
  Transmission Date: 20230112
  Serious: Yes (Other)
  Sender: FDA-Public Use
  Company Number: US-BRISTOL-MYERS SQUIBB COMPANY-2022-139531

PATIENT
  Age: 79 Year
  Sex: Male
  Weight: 77.5 kg

DRUGS (1)
  1. REVLIMID [Suspect]
     Active Substance: LENALIDOMIDE
     Indication: Plasma cell myeloma
     Dosage: C6 D1
     Route: 065
     Dates: start: 20111028, end: 20180525

REACTIONS (3)
  - Bone pain [Unknown]
  - Plasma cell myeloma recurrent [Unknown]
  - Spinal pain [Unknown]

NARRATIVE: CASE EVENT DATE: 20180101
